FAERS Safety Report 12754746 (Version 1)
Quarter: 2016Q3

REPORT INFORMATION
  Report Type: Spontaneous
  Country: US (occurrence: US)
  Receive Date: 20160915
  Receipt Date: 20160915
  Transmission Date: 20161109
  Serious: No
  Sender: FDA-Public Use
  Company Number: US-SHIRE-US201612654

PATIENT
  Age: 36 Year
  Sex: Male

DRUGS (1)
  1. VPRIV [Suspect]
     Active Substance: VELAGLUCERASE ALFA
     Indication: GAUCHER^S DISEASE
     Dosage: 5200 IU, 1X/2WKS
     Route: 041
     Dates: start: 201107

REACTIONS (2)
  - Joint injury [Unknown]
  - Pain [Unknown]

NARRATIVE: CASE EVENT DATE: 20160910
